FAERS Safety Report 17644979 (Version 1)
Quarter: 2020Q2

REPORT INFORMATION
  Report Type: Spontaneous
  Country: US (occurrence: US)
  Receive Date: 20200408
  Receipt Date: 20200408
  Transmission Date: 20200713
  Serious: No
  Sender: FDA-Public Use
  Company Number: None

PATIENT
  Age: 36 Year
  Sex: Female
  Weight: 54 kg

DRUGS (6)
  1. ALPRAZOLAM .5 MG TABLET [Suspect]
     Active Substance: ALPRAZOLAM
     Indication: ANXIETY
     Route: 048
     Dates: start: 20200328
  2. MOTRIN [Concomitant]
     Active Substance: IBUPROFEN
  3. MULTIVITAMIN [Concomitant]
     Active Substance: VITAMINS
  4. ALPRAZOLAM. [Concomitant]
     Active Substance: ALPRAZOLAM
  5. TYLENOL [Concomitant]
     Active Substance: ACETAMINOPHEN
  6. LYRICA [Concomitant]
     Active Substance: PREGABALIN

REACTIONS (7)
  - Product physical issue [None]
  - Insomnia [None]
  - Anxiety [None]
  - Product colour issue [None]
  - Product quality issue [None]
  - Drug ineffective [None]
  - Decreased appetite [None]

NARRATIVE: CASE EVENT DATE: 20200407
